FAERS Safety Report 6273025-1 (Version None)
Quarter: 2009Q3

REPORT INFORMATION
  Report Type: 
  Country: None (occurrence: None)
  Receive Date: 20090715
  Receipt Date: 20090715
  Transmission Date: 20100115
  Serious: No
  Sender: FDA-Public Use
  Company Number: None

PATIENT
  Age: 44 Year
  Sex: Female
  Weight: 65.318 kg

DRUGS (1)
  1. RAPTIVA [Suspect]
     Indication: PSORIASIS
     Dosage: 50MG ? ONCE A WEEK SQ
     Route: 058
     Dates: start: 20071111, end: 20090524

REACTIONS (7)
  - BURNING SENSATION [None]
  - CONDITION AGGRAVATED [None]
  - DEPRESSION [None]
  - PRURITUS [None]
  - PSORIASIS [None]
  - SCRATCH [None]
  - SKIN EXFOLIATION [None]
